FAERS Safety Report 6908241-6 (Version None)
Quarter: 2010Q3

REPORT INFORMATION
  Report Type: 
  Country: None (occurrence: None)
  Receive Date: 20100805
  Receipt Date: 20100802
  Transmission Date: 20110219
  Serious: Yes (Life-Threatening, Hospitalization)
  Sender: FDA-Public Use
  Company Number: FR-ROCHE-711262

PATIENT
  Sex: Male
  Weight: 50 kg

DRUGS (22)
  1. MIRCERA [Suspect]
     Dosage: FREQUENCY: MONTHLY
     Route: 042
     Dates: start: 20090601
  2. MIRCERA [Suspect]
     Route: 042
     Dates: start: 20090802
  3. MIRCERA [Suspect]
     Dosage: DOSE INCREASED
     Route: 042
     Dates: start: 20090902
  4. MIRCERA [Suspect]
     Route: 042
     Dates: start: 20091207
  5. MIRCERA [Suspect]
     Route: 042
     Dates: start: 20100301
  6. MIRCERA [Suspect]
     Route: 042
     Dates: start: 20100501
  7. MABTHERA [Suspect]
     Indication: PROPHYLAXIS
     Route: 065
     Dates: start: 20090728, end: 20090730
  8. BACTRIM [Suspect]
     Indication: INFECTION PROPHYLAXIS
     Route: 048
     Dates: start: 20090720, end: 20100203
  9. BACTRIM [Suspect]
     Route: 048
  10. VENOFER [Concomitant]
  11. AERIUS [Concomitant]
     Route: 048
     Dates: start: 20090101
  12. PANTOPRAZOLE SODIUM [Concomitant]
     Route: 048
     Dates: start: 20100301
  13. DEDROGYL [Concomitant]
     Indication: PROPHYLAXIS
     Route: 048
     Dates: start: 20080101
  14. LANTUS [Concomitant]
  15. NOVORAPID [Concomitant]
  16. MYFORTIC [Concomitant]
  17. ROVALCYTE [Concomitant]
     Indication: TRANSPLANT
     Route: 048
     Dates: start: 20100301
  18. CERIS [Concomitant]
     Indication: URINARY INCONTINENCE
     Route: 048
     Dates: start: 20100301
  19. PROGRAF [Concomitant]
     Indication: TRANSPLANT
     Route: 048
     Dates: start: 20100301
  20. CORTANCYL [Concomitant]
     Indication: TRANSPLANT
     Route: 048
     Dates: start: 20100301
  21. CELLCEPT [Concomitant]
     Indication: TRANSPLANT
     Dates: start: 20100301
  22. RENAGEL [Concomitant]
     Indication: OSTEODYSTROPHY
     Route: 048
     Dates: start: 20071019, end: 20100311

REACTIONS (4)
  - ANAEMIA [None]
  - BLOOD SODIUM INCREASED [None]
  - HYPERTENSIVE ENCEPHALOPATHY [None]
  - LUNG INFECTION [None]
